FAERS Safety Report 21871637 (Version 1)
Quarter: 2023Q1

REPORT INFORMATION
  Report Type: Spontaneous
  Country: CN (occurrence: CN)
  Receive Date: 20230117
  Receipt Date: 20230117
  Transmission Date: 20230418
  Serious: Yes (Other)
  Sender: FDA-Public Use
  Company Number: CN-PFIZER INC-PV202300003625

PATIENT
  Age: 56 Year
  Sex: Female

DRUGS (2)
  1. SOLU-MEDROL [Suspect]
     Active Substance: METHYLPREDNISOLONE SODIUM SUCCINATE
     Indication: Chronic hepatic failure
     Dosage: 20 MG, 1X/DAY
     Route: 041
     Dates: start: 20221024, end: 20221103
  2. SOLU-MEDROL [Suspect]
     Active Substance: METHYLPREDNISOLONE SODIUM SUCCINATE
     Indication: Sjogren^s syndrome

REACTIONS (5)
  - Fluid retention [Recovering/Resolving]
  - Sodium retention [Recovering/Resolving]
  - Oedema peripheral [Recovering/Resolving]
  - Face oedema [Recovering/Resolving]
  - Off label use [Unknown]

NARRATIVE: CASE EVENT DATE: 20221024
